FAERS Safety Report 7654726-7 (Version None)
Quarter: 2011Q3

REPORT INFORMATION
  Report Type: 
  Country: None (occurrence: None)
  Receive Date: 20110804
  Receipt Date: 20110725
  Transmission Date: 20111222
  Serious: No
  Sender: FDA-Public Use
  Company Number: US-BIOGENIDEC-2010BI018064

PATIENT
  Age: 41 Year
  Sex: Female

DRUGS (1)
  1. TYSABRI [Suspect]
     Indication: MULTIPLE SCLEROSIS
     Route: 042
     Dates: start: 20081216

REACTIONS (9)
  - METRORRHAGIA [None]
  - OVARIAN CYST [None]
  - CERVIX ENLARGEMENT [None]
  - UTERINE POLYP [None]
  - VAGINAL HAEMORRHAGE [None]
  - HAEMORRHAGE [None]
  - FEMALE GENITAL OPERATION [None]
  - MENORRHAGIA [None]
  - INCREASED UPPER AIRWAY SECRETION [None]
